FAERS Safety Report 6226955-0 (Version None)
Quarter: 2009Q2

REPORT INFORMATION
  Report Type: 
  Country: None (occurrence: None)
  Receive Date: 20090612
  Receipt Date: 20090609
  Transmission Date: 20091009
  Serious: Yes (Other)
  Sender: FDA-Public Use
  Company Number: US-BRISTOL-MYERS SQUIBB COMPANY-14655724

PATIENT
  Age: 38 Year
  Sex: Female

DRUGS (3)
  1. REYATAZ [Suspect]
     Indication: HIV INFECTION
     Dosage: REDUCED TO 300MG DAILY
  2. COMBIVIR [Suspect]
  3. RITONAVIR [Suspect]

REACTIONS (2)
  - PREGNANCY [None]
  - VIRAL LOAD INCREASED [None]
